FAERS Safety Report 8090892-X (Version None)
Quarter: 2012Q1

REPORT INFORMATION
  Report Type: 
  Country: None (occurrence: None)
  Receive Date: 20120131
  Receipt Date: 20120125
  Transmission Date: 20120608
  Serious: Yes (Hospitalization, Other)
  Sender: FDA-Public Use
  Company Number: US-SANOFI-AVENTIS-2012SA005518

PATIENT
  Age: 61 Year
  Sex: Female

DRUGS (3)
  1. LANTUS [Suspect]
     Dosage: DOSE:15 UNIT(S)
     Route: 058
  2. SOLOSTAR [Suspect]
  3. LANTUS [Suspect]
     Dosage: 8-10 UNITS DAILY
     Route: 058

REACTIONS (5)
  - SWELLING [None]
  - HOSPITALISATION [None]
  - BLOOD GLUCOSE DECREASED [None]
  - PRODUCT ODOUR ABNORMAL [None]
  - BLOOD GLUCOSE INCREASED [None]
